FAERS Safety Report 7579179-9 (Version None)
Quarter: 2011Q2

REPORT INFORMATION
  Report Type: 
  Country: None (occurrence: None)
  Receive Date: 20110628
  Receipt Date: 20090507
  Transmission Date: 20111010
  Serious: Yes (Other)
  Sender: FDA-Public Use
  Company Number: US-BAYER-200833323NA

PATIENT
  Sex: Female
  Weight: 123.81 kg

DRUGS (4)
  1. MAGNEVIST [Suspect]
     Indication: ANGIOGRAM
     Dosage: 35 ML, ONCE
     Route: 042
     Dates: start: 20060829, end: 20060829
  2. CELLCEPT [Concomitant]
  3. COUMADIN [Concomitant]
  4. PREDNISONE [Concomitant]

REACTIONS (1)
  - NEPHROGENIC SYSTEMIC FIBROSIS [None]
